FAERS Safety Report 8310419-4 (Version None)
Quarter: 2012Q2

REPORT INFORMATION
  Report Type: 
  Country: None (occurrence: None)
  Receive Date: 20120425
  Receipt Date: 20120418
  Transmission Date: 20120825
  Serious: Yes (Hospitalization)
  Sender: FDA-Public Use
  Company Number: US-VERTEX PHARMACEUTICALS INC.-AE-2011-004964

PATIENT
  Sex: Female
  Weight: 45.1 kg

DRUGS (12)
  1. PANCRELIPASE [Concomitant]
     Route: 048
  2. IVACAFTOR [Suspect]
     Indication: CYSTIC FIBROSIS
     Route: 048
     Dates: start: 20110818
  3. LEVALBUTEROL HCL [Concomitant]
  4. PREDNISONE [Concomitant]
     Route: 048
  5. ADVAIR DISKUS 100/50 [Concomitant]
  6. PULMOZYME [Concomitant]
  7. ADEKS [Concomitant]
     Route: 048
  8. AZTREONAM [Concomitant]
  9. IPRATROPIUM BROMIDE [Concomitant]
  10. LANSOPRAZOLE [Concomitant]
     Route: 048
  11. IBUPROFEN [Concomitant]
     Route: 048
  12. LORATADINE [Concomitant]
     Route: 048

REACTIONS (4)
  - SECONDARY ADRENOCORTICAL INSUFFICIENCY [None]
  - SYNCOPE [None]
  - UPPER RESPIRATORY TRACT INFECTION [None]
  - INFECTIVE PULMONARY EXACERBATION OF CYSTIC FIBROSIS [None]
